FAERS Safety Report 13679507 (Version 1)
Quarter: 2017Q2

REPORT INFORMATION
  Report Type: Spontaneous
  Country: AU (occurrence: AU)
  Receive Date: 20170622
  Receipt Date: 20170622
  Transmission Date: 20170830
  Serious: No
  Sender: FDA-Public Use
  Company Number: AU-009507513-1706AUS009339

PATIENT
  Sex: Female

DRUGS (1)
  1. DIPROSONE [Suspect]
     Active Substance: BETAMETHASONE DIPROPIONATE
     Indication: SINUSITIS
     Dosage: 2 CM, ONCE IN THE MORNING AND ONCE AT NIGHT
     Route: 045
     Dates: start: 20170619

REACTIONS (5)
  - Product use in unapproved indication [Unknown]
  - Product packaging quantity issue [None]
  - Incorrect route of drug administration [Unknown]
  - Product quality issue [Unknown]
  - Wrong technique in product usage process [Unknown]

NARRATIVE: CASE EVENT DATE: 201706
